FAERS Safety Report 23716315 (Version 1)
Quarter: 2024Q2

REPORT INFORMATION
  Report Type: Spontaneous
  Country: IR (occurrence: IR)
  Receive Date: 20240408
  Receipt Date: 20240408
  Transmission Date: 20240715
  Serious: Yes (Death, Hospitalization, Other)
  Sender: FDA-Public Use
  Company Number: IR-SANDOZ-SDZ2024IR034713

PATIENT
  Age: 93 Year
  Sex: Female

DRUGS (1)
  1. METFORMIN [Suspect]
     Active Substance: METFORMIN HYDROCHLORIDE
     Indication: Product used for unknown indication
     Dosage: TABLET
     Route: 065

REACTIONS (5)
  - Cardiac arrest [Fatal]
  - Overdose [Fatal]
  - Arrhythmia [Unknown]
  - Depressed level of consciousness [Unknown]
  - Hyperhidrosis [Unknown]
